FAERS Safety Report 8188097-7 (Version None)
Quarter: 2012Q1

REPORT INFORMATION
  Report Type: 
  Country: None (occurrence: None)
  Receive Date: 20120306
  Receipt Date: 20120221
  Transmission Date: 20120608
  Serious: Yes (Other)
  Sender: FDA-Public Use
  Company Number: US-WATSON-2012-03279

PATIENT
  Age: 55 Year
  Sex: Male

DRUGS (3)
  1. MORPHINE SULFATE [Suspect]
     Indication: GLOSSODYNIA
     Dosage: 30 MG, PRN
     Route: 065
  2. IBUPROFEN [Suspect]
     Indication: GLOSSODYNIA
     Dosage: 800 MG, TID
     Route: 065
  3. METHADON HCL TAB [Suspect]

REACTIONS (1)
  - SEDATION [None]
